FAERS Safety Report 8128778-4 (Version None)
Quarter: 2012Q1

REPORT INFORMATION
  Report Type: 
  Country: None (occurrence: None)
  Receive Date: 20120210
  Receipt Date: 20120203
  Transmission Date: 20120608
  Serious: Yes (Hospitalization)
  Sender: FDA-Public Use
  Company Number: TW-PFIZER INC-2012032281

PATIENT
  Age: 70 Year
  Sex: Female

DRUGS (6)
  1. PRIMPERAN TAB [Suspect]
     Dosage: UNK
  2. GABAPENTIN [Suspect]
     Dosage: UNK
  3. TRAMADOL HYDROCHLORIDE AND ACETAMINOPHEN [Concomitant]
     Dosage: UNK
     Dates: start: 20111001, end: 20111004
  4. HUMULIN R [Suspect]
     Indication: DIABETES MELLITUS
     Dosage: 57 IU
  5. CEFAZOLIN [Concomitant]
     Dosage: UNK
     Dates: start: 20110926, end: 20110927
  6. ACETAMINOPHEN [Concomitant]
     Dosage: UNK
     Dates: start: 20110926, end: 20110929

REACTIONS (2)
  - MOVEMENT DISORDER [None]
  - TRAUMATIC FRACTURE [None]
